FAERS Safety Report 5128383-8 (Version None)
Quarter: 2006Q4

REPORT INFORMATION
  Report Type: 
  Country: None (occurrence: None)
  Receive Date: 20061017
  Receipt Date: 20060927
  Transmission Date: 20070319
  Serious: Yes (Death)
  Sender: FDA-Public Use
  Company Number: PHBS2006JP15030

PATIENT
  Age: 42 Year
  Sex: Male

DRUGS (6)
  1. CYCLOSPORINE [Suspect]
     Indication: BONE MARROW TRANSPLANT
     Dosage: UNK, UNK
     Route: 065
     Dates: start: 20060201
  2. TACROLIMUS [Suspect]
     Indication: BONE MARROW TRANSPLANT
     Dosage: UNK, UNK
     Route: 065
     Dates: end: 20060201
  3. METHOTREXATE [Concomitant]
     Indication: BONE MARROW TRANSPLANT
  4. MYCOPHENOLATE MOFETIL [Concomitant]
     Indication: BONE MARROW TRANSPLANT
     Dates: start: 20060201
  5. METHYLPREDNISOLONE [Concomitant]
     Indication: BONE MARROW TRANSPLANT
  6. MICAFUNGIN [Concomitant]
     Indication: PNEUMONIA FUNGAL
     Dates: start: 20060201

REACTIONS (5)
  - HAEMODIALYSIS [None]
  - LIFE SUPPORT [None]
  - RENAL DISORDER [None]
  - RESPIRATORY DISORDER [None]
  - TRICHOSPORON INFECTION [None]
